FAERS Safety Report 25779030 (Version 2)
Quarter: 2025Q4

REPORT INFORMATION
  Report Type: Spontaneous
  Country: US (occurrence: US)
  Receive Date: 20250909
  Receipt Date: 20251124
  Transmission Date: 20260117
  Serious: Yes (Death, Hospitalization, Other)
  Sender: OTSUKA
  Company Number: US-MMM-Otsuka-B4WGZMN3

PATIENT
  Age: 82 Year
  Sex: Male

DRUGS (2)
  1. REXULTI [Suspect]
     Active Substance: BREXPIPRAZOLE
     Indication: Agitation
     Dosage: UNK
     Route: 065
     Dates: start: 202410, end: 202412
  2. REXULTI [Suspect]
     Active Substance: BREXPIPRAZOLE
     Indication: Dementia Alzheimer^s type

REACTIONS (8)
  - Dementia [Fatal]
  - Starvation [Unknown]
  - Fall [Unknown]
  - Speech disorder [Unknown]
  - Grip strength decreased [Unknown]
  - Movement disorder [Not Recovered/Not Resolved]
  - Gait disturbance [Not Recovered/Not Resolved]
  - Weight increased [Unknown]

NARRATIVE: CASE EVENT DATE: 20241217
